FAERS Safety Report 7282460-4 (Version None)
Quarter: 2011Q1

REPORT INFORMATION
  Report Type: 
  Country: None (occurrence: None)
  Receive Date: 20110209
  Receipt Date: 20110131
  Transmission Date: 20110831
  Serious: Yes (Death, Hospitalization)
  Sender: FDA-Public Use
  Company Number: US-BRISTOL-MYERS SQUIBB COMPANY-14319305

PATIENT
  Age: 68 Year
  Sex: Male
  Weight: 73 kg

DRUGS (10)
  1. NICOTINIC ACID [Concomitant]
     Dosage: AT HS
     Route: 048
  2. MORPHINE SULFATE [Concomitant]
     Route: 048
  3. ASPIRIN [Concomitant]
     Route: 048
  4. SIMVASTATIN [Concomitant]
     Route: 048
  5. VICODIN [Concomitant]
     Dosage: 1 DF=1TAB, TOTAL DOSE DOSE-8 DOSAGE FORMS
     Route: 048
  6. MIRALAX [Concomitant]
     Route: 048
  7. DOCETAXEL [Suspect]
     Indication: NON-SMALL CELL LUNG CANCER METASTATIC
     Route: 042
     Dates: start: 20080716, end: 20080806
  8. CETUXIMAB [Suspect]
     Indication: NON-SMALL CELL LUNG CANCER METASTATIC
     Route: 042
     Dates: start: 20080716, end: 20080813
  9. MEGACE [Concomitant]
     Route: 048
  10. OMEPRAZOLE [Concomitant]
     Route: 048

REACTIONS (2)
  - BRONCHIAL HAEMORRHAGE [None]
  - HAEMOPTYSIS [None]
